FAERS Safety Report 16412782 (Version 1)
Quarter: 2019Q2

REPORT INFORMATION
  Report Type: Spontaneous
  Country: SE (occurrence: SE)
  Receive Date: 20190611
  Receipt Date: 20190611
  Transmission Date: 20190711
  Serious: Yes (Death, Other)
  Sender: FDA-Public Use
  Company Number: SE-AMGEN-SWESP2019091718

PATIENT
  Age: 88 Year
  Sex: Male

DRUGS (1)
  1. NEUPOGEN [Suspect]
     Active Substance: FILGRASTIM
     Indication: HAEMATOPOIETIC STEM CELL MOBILISATION
     Dosage: 10 MICROGRAM/KILOGRAM, QD FOR 4 DAYS
     Route: 058

REACTIONS (3)
  - Acute pulmonary oedema [Fatal]
  - Cardiac failure [Fatal]
  - Cardiac hypertrophy [Fatal]
